FAERS Safety Report 22359635 (Version 1)
Quarter: 2023Q2

REPORT INFORMATION
  Report Type: Spontaneous
  Country: HR (occurrence: HR)
  Receive Date: 20230524
  Receipt Date: 20230524
  Transmission Date: 20230722
  Serious: Yes (Other)
  Sender: FDA-Public Use
  Company Number: None

PATIENT
  Age: 53 Year
  Sex: Female
  Weight: 60 kg

DRUGS (2)
  1. INTERFERON BETA-1B [Suspect]
     Active Substance: INTERFERON BETA-1B
     Indication: Relapsing-remitting multiple sclerosis
     Dosage: 250 ?G, QOD
     Route: 058
     Dates: start: 2004, end: 202304
  2. UROTRIM [SOLIFENACIN SUCCINATE] [Concomitant]
     Dosage: DNEVNA DOZA: 5 MG
     Route: 048

REACTIONS (3)
  - Lipodystrophy acquired [Not Recovered/Not Resolved]
  - Chills [Not Recovered/Not Resolved]
  - Application site oedema [Not Recovered/Not Resolved]

NARRATIVE: CASE EVENT DATE: 20210101
